FAERS Safety Report 5205353-2 (Version None)
Quarter: 2007Q1

REPORT INFORMATION
  Report Type: 
  Country: None (occurrence: None)
  Receive Date: 20070110
  Receipt Date: 20061226
  Transmission Date: 20070707
  Serious: Yes (Hospitalization, Other)
  Sender: FDA-Public Use
  Company Number: JP-BRISTOL-MYERS SQUIBB COMPANY-13636428

PATIENT
  Age: 74 Year
  Sex: Female

DRUGS (6)
  1. GATIFLO TABS 100 MG [Suspect]
     Indication: BRONCHITIS
     Route: 048
     Dates: start: 20061212, end: 20061213
  2. ZOLOFT [Concomitant]
     Route: 048
     Dates: start: 20060916
  3. RESLIN [Concomitant]
     Route: 048
     Dates: start: 20060916
  4. DOGMATYL [Concomitant]
     Route: 048
     Dates: start: 20060916
  5. DEPAS [Concomitant]
     Route: 048
     Dates: start: 20060916
  6. PL GRANULES [Concomitant]
     Route: 048
     Dates: start: 20061212

REACTIONS (3)
  - HYPOGLYCAEMIA [None]
  - HYPOTENSION [None]
  - URTICARIA [None]
